FAERS Safety Report 7021665-4 (Version None)
Quarter: 2010Q3

REPORT INFORMATION
  Report Type: 
  Country: None (occurrence: None)
  Receive Date: 20100928
  Receipt Date: 20100914
  Transmission Date: 20110219
  Serious: Yes (Hospitalization)
  Sender: FDA-Public Use
  Company Number: 2010AP001979

PATIENT
  Age: 79 Year
  Sex: Female

DRUGS (10)
  1. CARVEDILOL [Suspect]
     Indication: CARDIAC DISORDER
     Dosage: 37.5 MG;QD
  2. LEVOTHYROXINE SODIUM [Concomitant]
  3. ESOMEPRAZOLE (ESOMEPRAZOLE) [Concomitant]
  4. METFORMIN HCL [Concomitant]
  5. VENLAFAXINE HCL [Concomitant]
  6. CALCIUM CARBONATE [Concomitant]
  7. ASPIRIN [Concomitant]
  8. SIMVASTATIN [Concomitant]
  9. MULTI-VITAMINS [Concomitant]
  10. CALCIUM (CALCIUM) [Concomitant]

REACTIONS (4)
  - DIZZINESS [None]
  - FALL [None]
  - HIP FRACTURE [None]
  - RIB FRACTURE [None]
